FAERS Safety Report 6735069-2 (Version None)
Quarter: 2010Q2

REPORT INFORMATION
  Report Type: 
  Country: None (occurrence: None)
  Receive Date: 20100521
  Receipt Date: 20100511
  Transmission Date: 20101027
  Serious: Yes (Other)
  Sender: FDA-Public Use
  Company Number: CA-JNJFOC-20100408186

PATIENT
  Sex: Female

DRUGS (2)
  1. LEVAQUIN [Suspect]
     Indication: DRUG USE FOR UNKNOWN INDICATION
     Route: 048
  2. XOLAIR [Suspect]
     Indication: ASTHMA
     Dosage: 300 Q 2
     Route: 058

REACTIONS (2)
  - BRONCHOSPASM [None]
  - DRUG INEFFECTIVE [None]
